FAERS Safety Report 4359826-5 (Version None)
Quarter: 2004Q2

REPORT INFORMATION
  Report Type: 
  Country: None (occurrence: None)
  Receive Date: 20040514
  Receipt Date: 20040428
  Transmission Date: 20050107
  Serious: Yes (Hospitalization)
  Sender: FDA-Public Use
  Company Number: DSA_24325_2004

PATIENT
  Sex: Male

DRUGS (2)
  1. CEFTIBUTEN [Suspect]
     Indication: VIRAL INFECTION
  2. STEROID [Suspect]

REACTIONS (2)
  - OEDEMA [None]
  - PNEUMONIA [None]
